FAERS Safety Report 4958387-7 (Version None)
Quarter: 2006Q1

REPORT INFORMATION
  Report Type: 
  Country: None (occurrence: None)
  Receive Date: 20060329
  Receipt Date: 20060329
  Transmission Date: 20060701
  Serious: Yes (Death)
  Sender: FDA-Public Use
  Company Number: None

PATIENT
  Age: 64 Year
  Sex: Female
  Weight: 88.905 kg

DRUGS (1)
  1. AMIODARONE HCL [Suspect]
     Indication: ATRIAL FLUTTER
     Dosage: 200MG   1X DAILY  PO
     Route: 048
     Dates: start: 20050110, end: 20050819

REACTIONS (7)
  - ASTHMA [None]
  - BRONCHITIS [None]
  - PNEUMONIA HERPES VIRAL [None]
  - PNEUMONIA NECROTISING [None]
  - PULMONARY FIBROSIS [None]
  - SUPERINFECTION [None]
  - TRACHEOBRONCHITIS [None]
